FAERS Safety Report 18043562 (Version 1)
Quarter: 2020Q3

REPORT INFORMATION
  Report Type: Spontaneous
  Country: US (occurrence: US)
  Receive Date: 20200717
  Receipt Date: 20200717
  Transmission Date: 20201103
  Serious: Yes (Disabling, Other)
  Sender: FDA-Public Use
  Company Number: None

PATIENT
  Age: 55 Year
  Sex: Female
  Weight: 76.5 kg

DRUGS (7)
  1. EXCEDRIN [Concomitant]
     Active Substance: ACETAMINOPHEN\ASPIRIN\CAFFEINE
  2. LYRICA [Suspect]
     Active Substance: PREGABALIN
  3. ESTRADIOL. [Concomitant]
     Active Substance: ESTRADIOL
  4. FLEXERIL [Concomitant]
     Active Substance: CYCLOBENZAPRINE HYDROCHLORIDE
  5. TRAMADOL. [Concomitant]
     Active Substance: TRAMADOL
  6. TIZANIDINE. [Concomitant]
     Active Substance: TIZANIDINE
  7. HCTZ [Concomitant]
     Active Substance: HYDROCHLOROTHIAZIDE

REACTIONS (3)
  - Withdrawal syndrome [None]
  - Intellectual disability [None]
  - Cerebral disorder [None]

NARRATIVE: CASE EVENT DATE: 20190501
